FAERS Safety Report 10967157 (Version 1)
Quarter: 2015Q1

REPORT INFORMATION
  Report Type: Spontaneous
  Country: None (occurrence: None)
  Receive Date: 20150226
  Receipt Date: 20150226
  Transmission Date: 20150721
  Serious: No
  Sender: FDA-Public Use
  Company Number: TPA2010A02535

PATIENT
  Age: 73 Year
  Sex: Male

DRUGS (6)
  1. MULTIVITAMINS (ERGOCALCIFEROL, ASCORBIC ACID, FOLIC ACID, THIAMINE HYDROCHLORIDE, RETINOL, RIBOFLAVIN, NICOTINAMIDE, PANTHENOL) [Concomitant]
  2. FISH OIL [Concomitant]
     Active Substance: FISH OIL
  3. ULORIC [Suspect]
     Active Substance: FEBUXOSTAT
     Indication: GOUT
     Dosage: 1 IN 1 DAY
     Route: 048
     Dates: start: 20100128
  4. ESTER-C (CALCIUM ASCORBATE) [Concomitant]
  5. ESTER-B COMPLEX (ALL OTHER THERAPEUTIC PRODUCTS) [Concomitant]
  6. UNKNOWN BLOOD PRESSURE MEDICATION (ALL OTHER THERAPEUTIC PRODUCTS) [Concomitant]
     Indication: GOUT

REACTIONS (1)
  - Gout [None]
